FAERS Safety Report 7184546-1 (Version None)
Quarter: 2010Q4

REPORT INFORMATION
  Report Type: 
  Country: None (occurrence: None)
  Receive Date: 20101222
  Receipt Date: 20101213
  Transmission Date: 20110411
  Serious: Yes (Hospitalization)
  Sender: FDA-Public Use
  Company Number: TR-ELI_LILLY_AND_COMPANY-TR201012004169

PATIENT

DRUGS (2)
  1. HUMULIN R [Suspect]
     Indication: GESTATIONAL DIABETES
     Dosage: 8 U, 3/D
     Route: 064
     Dates: start: 20101027, end: 20101208
  2. HUMULIN N [Suspect]
     Indication: GESTATIONAL DIABETES
     Dosage: 28 U, DAILY (1/D)
     Route: 064
     Dates: start: 20101027, end: 20101208

REACTIONS (2)
  - DRUG EXPOSURE DURING PREGNANCY [None]
  - MACROSOMIA [None]
